FAERS Safety Report 5621753-0 (Version None)
Quarter: 2008Q1

REPORT INFORMATION
  Report Type: 
  Country: None (occurrence: None)
  Receive Date: 20080211
  Receipt Date: 20080131
  Transmission Date: 20080703
  Serious: Yes (Other)
  Sender: FDA-Public Use
  Company Number: PHBS2008NL01554

PATIENT
  Age: 79 Year
  Sex: Male

DRUGS (6)
  1. PRAMIPEXOLE DIHYDROCHLORIDE [Concomitant]
     Dosage: 0.25 MG, TID
     Route: 065
  2. IRBESARTAN [Concomitant]
     Dosage: 150 MG/D
     Route: 065
  3. SINEMET [Concomitant]
     Dosage: 100/25 MG X 3
     Route: 065
  4. ACENOCOUMAROL [Concomitant]
     Dosage: 1 MG/D
     Route: 065
  5. METOPROLOL TARTRATE [Concomitant]
     Dosage: 1 DF/D
     Route: 065
  6. STALEVO 100 [Suspect]
     Indication: PARKINSON'S DISEASE
     Dosage: 200 MG, TID
     Route: 065
     Dates: start: 20061201

REACTIONS (1)
  - ARTHRALGIA [None]
